FAERS Safety Report 22313414 (Version 1)
Quarter: 2023Q2

REPORT INFORMATION
  Report Type: Other
  Country: IE (occurrence: IE)
  Receive Date: 20230512
  Receipt Date: 20230512
  Transmission Date: 20230722
  Serious: Yes (Other)
  Sender: FDA-Public Use
  Company Number: IE-MLMSERVICE-20230424-4248547-1

PATIENT

DRUGS (1)
  1. DEXAMETHASONE [Suspect]
     Active Substance: DEXAMETHASONE
     Indication: Dermoid cyst
     Dosage: UNK
     Route: 065

REACTIONS (2)
  - Off label use [Unknown]
  - Blood corticotrophin increased [Unknown]
